FAERS Safety Report 13221862 (Version 1)
Quarter: 2017Q1

REPORT INFORMATION
  Report Type: Spontaneous
  Country: AU (occurrence: AU)
  Receive Date: 20170211
  Receipt Date: 20170211
  Transmission Date: 20170428
  Serious: Yes (Hospitalization)
  Sender: FDA-Public Use
  Company Number: AU-SUNOVION-2017DSP000022

PATIENT
  Age: 5 Decade
  Sex: Male

DRUGS (1)
  1. LATUDA [Suspect]
     Active Substance: LURASIDONE HYDROCHLORIDE
     Indication: SCHIZOPHRENIA
     Dosage: 160 MG, QD

REACTIONS (4)
  - Weight increased [Recovered/Resolved]
  - Apathy [Recovered/Resolved]
  - Depressive symptom [Recovered/Resolved]
  - Decreased appetite [Recovered/Resolved]
